APPROVED DRUG PRODUCT: ALESSE
Active Ingredient: ETHINYL ESTRADIOL; LEVONORGESTREL
Strength: 0.02MG;0.1MG **Federal Register determination that product was not discontinued or withdrawn for safety or effectiveness reasons**
Dosage Form/Route: TABLET;ORAL-28
Application: N020683 | Product #002
Applicant: CADENCE HEALTH
Approved: Mar 27, 1997 | RLD: Yes | RS: No | Type: DISCN